FAERS Safety Report 15827035 (Version 1)
Quarter: 2019Q1

REPORT INFORMATION
  Report Type: Spontaneous
  Country: US (occurrence: US)
  Receive Date: 20190115
  Receipt Date: 20190115
  Transmission Date: 20190417
  Serious: Yes (Hospitalization)
  Sender: FDA-Public Use
  Company Number: US-HERITAGE PHARMACEUTICALS-2019HTG00001

PATIENT
  Age: 52 Year
  Sex: Male

DRUGS (10)
  1. CLONAZEPAM. [Concomitant]
     Active Substance: CLONAZEPAM
     Dosage: 0.5 MG, 1X/DAY
  2. CLONAZEPAM. [Concomitant]
     Active Substance: CLONAZEPAM
     Dosage: 0.5 MG, 2X/DAY
     Route: 065
  3. FLUOXETINE [Suspect]
     Active Substance: FLUOXETINE HYDROCHLORIDE
     Indication: APATHY
     Dosage: 20 MG, 1X/DAY
     Route: 065
  4. FLUOXETINE [Suspect]
     Active Substance: FLUOXETINE HYDROCHLORIDE
     Indication: DEPRESSIVE SYMPTOM
     Dosage: 60 UNK
     Route: 065
  5. LISDEXAMFETAMINE [Suspect]
     Active Substance: LISDEXAMFETAMINE
     Indication: APATHY
     Dosage: 40 MG, 1X/DAY
     Route: 065
  6. MELATONIN [Suspect]
     Active Substance: MELATONIN
     Indication: INSOMNIA
     Dosage: 5 MG, 1X/DAY
     Route: 048
  7. FLUOCNAZOLE [Concomitant]
     Indication: ONYCHOMYCOSIS
     Dosage: 200 MG, 1X/WEEK
     Route: 065
  8. LISDEXAMFETAMINE [Suspect]
     Active Substance: LISDEXAMFETAMINE
     Indication: DEPRESSIVE SYMPTOM
  9. OLANZAPINE. [Concomitant]
     Active Substance: OLANZAPINE
     Dosage: 75 MG, 1X/DAY
     Route: 065
  10. FLUOXETINE [Suspect]
     Active Substance: FLUOXETINE HYDROCHLORIDE
     Dosage: 40 UNK
     Route: 065

REACTIONS (2)
  - Drug interaction [Recovered/Resolved]
  - Choreoathetosis [Recovering/Resolving]
